FAERS Safety Report 19435786 (Version 1)
Quarter: 2021Q2

REPORT INFORMATION
  Report Type: Spontaneous
  Country: CN (occurrence: CN)
  Receive Date: 20210618
  Receipt Date: 20210618
  Transmission Date: 20210717
  Serious: Yes (Other)
  Sender: FDA-Public Use
  Company Number: CN-APOTEX-2021AP014566

PATIENT
  Sex: Female

DRUGS (5)
  1. SEROXAT [Suspect]
     Active Substance: PAROXETINE HYDROCHLORIDE
     Dosage: 0.5 DF, QD, HALF TABLET
     Route: 048
     Dates: start: 202102
  2. SEROXAT [Suspect]
     Active Substance: PAROXETINE HYDROCHLORIDE
     Indication: ANXIETY
     Dosage: 1 DF, QD, TABLET
     Route: 048
     Dates: start: 202009
  3. SEROXAT CR MODIFIED RELEASE TABLET [Suspect]
     Active Substance: PAROXETINE HYDROCHLORIDE
     Indication: ANXIETY
  4. SEROXAT CR MODIFIED RELEASE TABLET [Suspect]
     Active Substance: PAROXETINE HYDROCHLORIDE
     Indication: DEPRESSION
     Dosage: 0.5 DF, QD, HALF TABLET
     Route: 048
     Dates: start: 20200805
  5. SEROXAT [Suspect]
     Active Substance: PAROXETINE HYDROCHLORIDE
     Indication: DEPRESSION
     Dosage: 0.5 DF, QD, HALF TABLET
     Route: 048
     Dates: start: 202008

REACTIONS (25)
  - Muscle tightness [Unknown]
  - Wrong technique in product usage process [Recovered/Resolved]
  - Diarrhoea [Recovering/Resolving]
  - Dyspepsia [Unknown]
  - Hyperhidrosis [Unknown]
  - Decreased appetite [Unknown]
  - Hypoxia [Unknown]
  - Photophobia [Unknown]
  - Dysphagia [Unknown]
  - Arthralgia [Unknown]
  - Oversensing [Unknown]
  - Off label use [Recovered/Resolved]
  - Drug level changed [Unknown]
  - Depressed level of consciousness [Unknown]
  - Visual acuity reduced [Unknown]
  - Circumstance or information capable of leading to medication error [Unknown]
  - Ocular discomfort [Unknown]
  - Musculoskeletal stiffness [Unknown]
  - Red blood cell sedimentation rate abnormal [Unknown]
  - Gastrointestinal malformation [Unknown]
  - Gastrooesophageal reflux disease [Unknown]
  - Dysuria [Unknown]
  - Lacrimation decreased [Unknown]
  - Product administered to patient of inappropriate age [Unknown]
  - Yawning [Not Recovered/Not Resolved]

NARRATIVE: CASE EVENT DATE: 2020
